FAERS Safety Report 5349422-5 (Version None)
Quarter: 2007Q2

REPORT INFORMATION
  Report Type: 
  Country: None (occurrence: None)
  Receive Date: 20070607
  Receipt Date: 20070529
  Transmission Date: 20071010
  Serious: Yes (Other)
  Sender: FDA-Public Use
  Company Number: AU-ROCHE-499593

PATIENT
  Age: 32 Year
  Sex: Female
  Weight: 60.3 kg

DRUGS (2)
  1. PEG-INTERFERON ALFA 2A (RO 25-8310) [Suspect]
     Route: 058
     Dates: start: 20070427
  2. METHADONE HCL [Concomitant]
     Dates: start: 20060101

REACTIONS (1)
  - SYNCOPE [None]
